FAERS Safety Report 9974476 (Version 1)
Quarter: 2014Q1

REPORT INFORMATION
  Report Type: Spontaneous
  Country: US (occurrence: US)
  Receive Date: 20140306
  Receipt Date: 20140306
  Transmission Date: 20141002
  Serious: No
  Sender: FDA-Public Use
  Company Number: US-ABBVIE-13P-163-1159177-00

PATIENT
  Age: 28 Year
  Sex: Female
  Weight: 49.94 kg

DRUGS (4)
  1. HUMIRA [Suspect]
     Indication: CROHN^S DISEASE
     Dosage: 160 MILLIGRAM STARTING DOSE
     Dates: start: 20131017, end: 20131017
  2. HUMIRA [Suspect]
  3. PREDNISONE [Concomitant]
     Indication: CROHN^S DISEASE
  4. UNKNOWN BIRTH CONTROL [Concomitant]
     Indication: CONTRACEPTION

REACTIONS (3)
  - Dizziness [Recovered/Resolved]
  - Nausea [Recovered/Resolved]
  - Vertigo [Recovered/Resolved]
